FAERS Safety Report 19722239 (Version 3)
Quarter: 2021Q3

REPORT INFORMATION
  Report Type: Spontaneous
  Country: FR (occurrence: FR)
  Receive Date: 20210819
  Receipt Date: 20210920
  Transmission Date: 20211014
  Serious: Yes (Hospitalization)
  Sender: FDA-Public Use
  Company Number: FR-MYLANLABS-2021M1052038

PATIENT
  Age: 73 Year
  Sex: Male

DRUGS (14)
  1. AZACITIDINE. [Suspect]
     Active Substance: AZACITIDINE
     Dosage: UNK
     Route: 041
     Dates: start: 20210128
  2. PEVONEDISTAT [Suspect]
     Active Substance: PEVONEDISTAT
     Dosage: UNK
     Route: 065
     Dates: start: 20210128
  3. CEFEPIME [Concomitant]
     Active Substance: CEFEPIME HYDROCHLORIDE
     Indication: FEBRILE BONE MARROW APLASIA
     Dosage: UNK
     Dates: start: 20210121, end: 20210129
  4. AMLODIPINE [Concomitant]
     Active Substance: AMLODIPINE BESYLATE
     Indication: PRODUCT USED FOR UNKNOWN INDICATION
     Dosage: UNK
  5. LENIZOL [Concomitant]
     Indication: FEBRILE BONE MARROW APLASIA
     Dosage: UNK
     Dates: start: 20210122, end: 20210122
  6. NOXAFIL [Concomitant]
     Active Substance: POSACONAZOLE
     Indication: FUNGAL INFECTION
     Dosage: UNK
     Dates: start: 20210115
  7. VENETOCLAX. [Suspect]
     Active Substance: VENETOCLAX
     Indication: ACUTE MYELOID LEUKAEMIA
     Dosage: UNK
     Route: 065
  8. PEVONEDISTAT [Suspect]
     Active Substance: PEVONEDISTAT
     Indication: ACUTE MYELOID LEUKAEMIA
     Dosage: UNK
     Route: 065
  9. AZACITIDINE. [Suspect]
     Active Substance: AZACITIDINE
     Indication: ACUTE MYELOID LEUKAEMIA
     Dosage: UNK
     Route: 041
  10. VENETOCLAX. [Suspect]
     Active Substance: VENETOCLAX
     Dosage: UNK
     Route: 065
     Dates: start: 20210128
  11. AMIKACINE                          /00391001/ [Concomitant]
     Active Substance: AMIKACIN
     Indication: CLOSTRIDIUM DIFFICILE COLITIS
     Dosage: UNK
     Dates: start: 20210203, end: 20210203
  12. VANCOMYCIN [Concomitant]
     Active Substance: VANCOMYCIN
     Indication: CLOSTRIDIUM DIFFICILE COLITIS
     Dosage: UNK
     Dates: start: 20210203, end: 20210211
  13. MEROPENEM. [Concomitant]
     Active Substance: MEROPENEM
     Indication: CLOSTRIDIUM DIFFICILE COLITIS
     Dosage: UNK
     Dates: start: 20210203, end: 20210208
  14. LENIZOL [Concomitant]
     Indication: FEBRILE NEUTROPENIA

REACTIONS (2)
  - Febrile bone marrow aplasia [Not Recovered/Not Resolved]
  - Febrile neutropenia [Recovered/Resolved]

NARRATIVE: CASE EVENT DATE: 20210215
